FAERS Safety Report 8837700 (Version 1)
Quarter: 2012Q4

REPORT INFORMATION
  Report Type: Report from Study
  Country: AU (occurrence: AU)
  Receive Date: 20121012
  Receipt Date: 20121012
  Transmission Date: 20130627
  Serious: Yes (Other)
  Sender: FDA-Public Use
  Company Number: AU-ROCHE-1143227

PATIENT
  Age: 48 Year
  Sex: Female

DRUGS (1)
  1. ROACTEMRA [Suspect]
     Indication: RHEUMATOID ARTHRITIS
     Route: 042
     Dates: start: 20100724

REACTIONS (3)
  - Visual impairment [Recovered/Resolved]
  - Dry mouth [Recovered/Resolved]
  - Oedema peripheral [Recovered/Resolved]
